FAERS Safety Report 19257932 (Version 1)
Quarter: 2021Q2

REPORT INFORMATION
  Report Type: Spontaneous
  Country: US (occurrence: US)
  Receive Date: 20210514
  Receipt Date: 20210514
  Transmission Date: 20210717
  Serious: No
  Sender: FDA-Public Use
  Company Number: US-SA-2021SA149640

PATIENT
  Age: 79 Year
  Sex: Female

DRUGS (3)
  1. TRESIBA [Concomitant]
     Active Substance: INSULIN DEGLUDEC
     Dosage: UNK UNK, QD (AT NIGHT)
  2. SOLIQUA 100/33 [Suspect]
     Active Substance: INSULIN GLARGINE\LIXISENATIDE
     Indication: TYPE 2 DIABETES MELLITUS
     Dosage: 30 IU, QD (AT NIGHT)
     Dates: start: 20210427
  3. MULTAQ [Concomitant]
     Active Substance: DRONEDARONE
     Dosage: UNK

REACTIONS (4)
  - Pollakiuria [Unknown]
  - Sleep disorder [Unknown]
  - Product use issue [Unknown]
  - Product communication issue [Unknown]

NARRATIVE: CASE EVENT DATE: 202104
